FAERS Safety Report 4458070-0 (Version None)
Quarter: 2004Q3

REPORT INFORMATION
  Report Type: 
  Country: None (occurrence: None)
  Receive Date: 20040923
  Receipt Date: 20040923
  Transmission Date: 20050211
  Serious: No
  Sender: FDA-Public Use
  Company Number: None

PATIENT

DRUGS (2)
  1. EPINEPHRINE [Suspect]
     Dosage: INJECTION
  2. DEXAMETHASONE SODIUM PHOSPHATE [Suspect]
     Dosage: INJECTABLE

REACTIONS (3)
  - HYPERTENSION [None]
  - MEDICATION ERROR [None]
  - TACHYCARDIA [None]
